FAERS Safety Report 17505832 (Version 1)
Quarter: 2020Q1

REPORT INFORMATION
  Report Type: Spontaneous
  Country: US (occurrence: US)
  Receive Date: 20200305
  Receipt Date: 20200305
  Transmission Date: 20200409
  Serious: Yes (Other)
  Sender: FDA-Public Use
  Company Number: US-TARO-2019TAR00193

PATIENT
  Sex: Male
  Weight: 87.98 kg

DRUGS (15)
  1. CRESTOR [Concomitant]
     Active Substance: ROSUVASTATIN CALCIUM
  2. ENALAPRIL MALEATE TABLETS USP 20 MG [Suspect]
     Active Substance: ENALAPRIL MALEATE
     Dosage: 20 MG, EVERY 48 HOURS
     Dates: start: 2018
  3. PROBIOTIC [Concomitant]
     Active Substance: PROBIOTICS NOS
  4. ENALAPRIL MALEATE TABLETS USP 20 MG [Suspect]
     Active Substance: ENALAPRIL MALEATE
     Indication: BLOOD PRESSURE ABNORMAL
     Dosage: 20 MG, 2X/DAY
     Route: 048
     Dates: end: 2018
  5. VITAMIN D [Concomitant]
     Active Substance: VITAMIN D NOS
  6. NIFEDIPINE. [Suspect]
     Active Substance: NIFEDIPINE
     Indication: HEART RATE DECREASED
     Dosage: 30 MG, 2X/DAY
     Route: 048
     Dates: start: 2018, end: 2018
  7. NEXIUM [Concomitant]
     Active Substance: ESOMEPRAZOLE MAGNESIUM
  8. NIFEDIPINE. [Suspect]
     Active Substance: NIFEDIPINE
     Dosage: 30 MG, 1X/DAY
     Dates: start: 2018, end: 2018
  9. METOPROLOL. [Suspect]
     Active Substance: METOPROLOL
  10. ENALAPRIL MALEATE TABLETS USP 20 MG [Suspect]
     Active Substance: ENALAPRIL MALEATE
     Dosage: 20 MG, 1X/DAY
     Dates: start: 2018, end: 2018
  11. APPLE CIDER VINEGAR PILL [Concomitant]
  12. NIFEDIPINE. [Suspect]
     Active Substance: NIFEDIPINE
     Dosage: 30 MG, EVERY 48 HOURS
  13. CALCIUM [Concomitant]
     Active Substance: CALCIUM
  14. FOLIC ACID. [Concomitant]
     Active Substance: FOLIC ACID
  15. MULTIVITAMIN [Concomitant]
     Active Substance: VITAMINS

REACTIONS (4)
  - Dizziness [Recovered/Resolved]
  - Heart rate decreased [Recovered/Resolved]
  - Drug interaction [Unknown]
  - Inappropriate schedule of product administration [Not Recovered/Not Resolved]

NARRATIVE: CASE EVENT DATE: 2018
